FAERS Safety Report 9046481 (Version 1)
Quarter: 2013Q1

REPORT INFORMATION
  Report Type: Report from Study
  Country: US (occurrence: US)
  Receive Date: 20130130
  Receipt Date: 20130130
  Transmission Date: 20140127
  Serious: No
  Sender: FDA-Public Use
  Company Number: US-ABBOTT-12P-163-0970642-00

PATIENT
  Age: 69 Year
  Sex: Female

DRUGS (12)
  1. HUMIRA 40 MG/0.8 ML PEN [Suspect]
     Indication: CROHN^S DISEASE
     Dates: start: 20110122
  2. PENTASA [Concomitant]
     Indication: CROHN^S DISEASE
  3. LOSARTAN [Concomitant]
     Indication: HYPERTENSION
     Dosage: 50-12.5MG DAILY
  4. AZATHIOPRINE [Concomitant]
     Indication: PRODUCT USED FOR UNKNOWN INDICATION
     Dosage: 2 TABLETS IN THE EVENING
  5. OMEPRAZOLE [Concomitant]
     Indication: GASTROOESOPHAGEAL REFLUX DISEASE
     Dosage: 40MG DAILY
  6. SIMVASTATIN [Concomitant]
     Indication: BLOOD CHOLESTEROL INCREASED
     Dosage: 40MG DAILY
  7. SERTRALINE [Concomitant]
     Indication: NERVOUSNESS
     Dosage: 50MG DAILY
  8. DICYCLOMINE [Concomitant]
     Indication: GASTROINTESTINAL DISORDER
  9. ZOFRAN [Concomitant]
     Indication: NAUSEA
  10. LORAZEPAM [Concomitant]
     Indication: INSOMNIA
  11. OXYCODONE [Concomitant]
     Indication: PAIN
     Dosage: 5-325MG AS NEEDED
  12. GAS-X [Concomitant]
     Indication: PRODUCT USED FOR UNKNOWN INDICATION

REACTIONS (3)
  - Device malfunction [Recovered/Resolved]
  - Incorrect dose administered [Recovered/Resolved]
  - Injection site pain [Recovered/Resolved]
